FAERS Safety Report 11232815 (Version 1)
Quarter: 2015Q3

REPORT INFORMATION
  Report Type: Spontaneous
  Country: US (occurrence: US)
  Receive Date: 20150701
  Receipt Date: 20150701
  Transmission Date: 20151125
  Serious: Yes (Hospitalization, Other)
  Sender: FDA-Public Use
  Company Number: US-CELGENEUS-USA-2015064865

PATIENT
  Sex: Male
  Weight: 72.64 kg

DRUGS (4)
  1. POMALYST [Suspect]
     Active Substance: POMALIDOMIDE
     Route: 048
     Dates: start: 201406
  2. DEXAMETHASONE. [Concomitant]
     Active Substance: DEXAMETHASONE
     Indication: PRODUCT USED FOR UNKNOWN INDICATION
     Route: 065
  3. METHOTREXATE [Concomitant]
     Active Substance: METHOTREXATE
     Indication: PRODUCT USED FOR UNKNOWN INDICATION
     Route: 065
  4. POMALYST [Suspect]
     Active Substance: POMALIDOMIDE
     Indication: PLASMA CELL MYELOMA
     Route: 048
     Dates: start: 201305

REACTIONS (7)
  - Haemoglobin decreased [Recovered/Resolved]
  - Pulmonary mass [Recovered/Resolved]
  - Somnolence [Recovered/Resolved]
  - Dyspnoea [Recovered/Resolved]
  - Pneumothorax [Recovered/Resolved]
  - Traumatic intracranial haemorrhage [Recovered/Resolved]
  - Fall [Recovered/Resolved]
